FAERS Safety Report 23253243 (Version 1)
Quarter: 2023Q4

REPORT INFORMATION
  Report Type: Spontaneous
  Country: FR (occurrence: FR)
  Receive Date: 20231202
  Receipt Date: 20231202
  Transmission Date: 20240110
  Serious: Yes (Other)
  Sender: FDA-Public Use
  Company Number: FR-AFSSAPS-AVNY2023000343

PATIENT
  Age: 26 Year
  Sex: Female
  Weight: 76 kg

DRUGS (5)
  1. PREGABALIN [Suspect]
     Active Substance: PREGABALIN
     Indication: Product used for unknown indication
     Dosage: 2200 MILLIGRAM
     Route: 065
     Dates: start: 20230810, end: 20230810
  2. DAFALGAN CODEINE [Suspect]
     Active Substance: ACETAMINOPHEN\CODEINE PHOSPHATE
     Indication: Product used for unknown indication
     Dosage: 16 DOSAGE FORM (16 CP DE DAFALGAN COD?IN? 500 MG/30 MG)
     Route: 048
     Dates: start: 20230810
  3. QUETIAPINE [Concomitant]
     Active Substance: QUETIAPINE
     Indication: Product used for unknown indication
     Dosage: 100 MILLIGRAM, ONCE A DAY (1 CP DE QUETIAPINE 100 MG TOUS LES SOIRS)
     Route: 065
  4. VALIUM [Concomitant]
     Active Substance: DIAZEPAM
     Indication: Product used for unknown indication
     Dosage: 30 MILLIGRAM, ONCE A DAY (3 CPS DE VALIUM 10 MG / JOUR)
     Route: 065
  5. ZOPICLONE [Concomitant]
     Active Substance: ZOPICLONE
     Indication: Product used for unknown indication
     Dosage: 15 MILLIGRAM, ONCE A DAY (2 CPS DE ZOPICLONE 7.5 MG / JOUR)
     Route: 065

REACTIONS (2)
  - Drug dependence [Recovering/Resolving]
  - Drug use disorder [Recovered/Resolved]

NARRATIVE: CASE EVENT DATE: 20230101
